FAERS Safety Report 5466236-6 (Version None)
Quarter: 2007Q3

REPORT INFORMATION
  Report Type: 
  Country: None (occurrence: None)
  Receive Date: 20070924
  Receipt Date: 20070912
  Transmission Date: 20080115
  Serious: Yes (Other)
  Sender: FDA-Public Use
  Company Number: US-PFIZER INC-2007076499

PATIENT
  Sex: Female

DRUGS (4)
  1. CHANTIX [Suspect]
     Indication: SMOKING CESSATION THERAPY
     Route: 048
  2. XANAX [Suspect]
     Indication: MAJOR DEPRESSION
  3. EFFEXOR [Concomitant]
  4. WELLBUTRIN [Concomitant]

REACTIONS (2)
  - DRUG SCREEN POSITIVE [None]
  - MAJOR DEPRESSION [None]
